FAERS Safety Report 12943591 (Version 1)
Quarter: 2016Q4

REPORT INFORMATION
  Report Type: Spontaneous
  Country: US (occurrence: US)
  Receive Date: 20161115
  Receipt Date: 20161115
  Transmission Date: 20170207
  Serious: Yes (Hospitalization)
  Sender: FDA-Public Use
  Company Number: US-SA-2016SA204099

PATIENT

DRUGS (4)
  1. ARA-C [Suspect]
     Active Substance: CYTARABINE
     Dosage: FREQUENCY: DAY2-4
     Route: 042
     Dates: start: 20120912, end: 20120915
  2. OXALIPLATIN. [Suspect]
     Active Substance: OXALIPLATIN
     Dosage: FREQUENCY: DAY1-4
     Route: 042
     Dates: start: 20120911, end: 20120915
  3. FLUDARA [Suspect]
     Active Substance: FLUDARABINE PHOSPHATE
     Dosage: FREQUENCY: DAY2-4
     Route: 042
     Dates: start: 20120912, end: 20120915
  4. RITUXAN [Suspect]
     Active Substance: RITUXIMAB
     Route: 065
     Dates: start: 20120813, end: 20120913

REACTIONS (1)
  - Tumour lysis syndrome [Recovered/Resolved]

NARRATIVE: CASE EVENT DATE: 20120911
